FAERS Safety Report 23628535 (Version 4)
Quarter: 2024Q3

REPORT INFORMATION
  Report Type: Report from Study
  Country: CA (occurrence: CA)
  Receive Date: 20240313
  Receipt Date: 20240828
  Transmission Date: 20241017
  Serious: Yes (Hospitalization)
  Sender: SANDOZ
  Company Number: CA-SANDOZ-SDZ2024CA026871

PATIENT
  Sex: Male

DRUGS (1)
  1. ERELZI [Suspect]
     Active Substance: ETANERCEPT-SZZS
     Indication: Ankylosing spondylitis
     Dosage: 50 MG, EVERY 2-3 WEEKS
     Route: 058
     Dates: start: 20181022

REACTIONS (2)
  - Hospitalisation [Unknown]
  - Off label use [Unknown]
